FAERS Safety Report 9060697 (Version 2)
Quarter: 2013Q1

REPORT INFORMATION
  Report Type: Report from Study
  Country: US (occurrence: US)
  Receive Date: 20130204
  Receipt Date: 20130311
  Transmission Date: 20140127
  Serious: Yes (Hospitalization, Other)
  Sender: FDA-Public Use
  Company Number: US-ABBOTT-13P-163-1041711-00

PATIENT
  Age: 51 None
  Sex: Female
  Weight: 77.18 kg

DRUGS (3)
  1. HUMIRA [Suspect]
     Indication: CROHN^S DISEASE
     Dates: start: 2011, end: 201202
  2. HUMIRA [Suspect]
  3. B12-VITAMIN [Concomitant]
     Indication: PRODUCT USED FOR UNKNOWN INDICATION
     Dates: start: 20121108, end: 20121108

REACTIONS (17)
  - Crohn^s disease [Recovered/Resolved]
  - Gastrointestinal dysplasia [Recovered/Resolved]
  - Endometriosis [Recovered/Resolved]
  - Lymphadenopathy [Recovered/Resolved]
  - Diverticulitis [Recovered/Resolved]
  - Abdominal abscess [Unknown]
  - Large intestinal stenosis [Unknown]
  - Injection site pain [Not Recovered/Not Resolved]
  - Inappropriate schedule of drug administration [Unknown]
  - Headache [Unknown]
  - Abdominal tenderness [Unknown]
  - Bowel movement irregularity [Unknown]
  - Anorectal discomfort [Unknown]
  - Faecal incontinence [Unknown]
  - Abdominal discomfort [Unknown]
  - Abdominal discomfort [Unknown]
  - Frequent bowel movements [Unknown]
